FAERS Safety Report 18477821 (Version 2)
Quarter: 2020Q4

REPORT INFORMATION
  Report Type: Spontaneous
  Country: US (occurrence: US)
  Receive Date: 20201108
  Receipt Date: 20201221
  Transmission Date: 20210114
  Serious: No
  Sender: FDA-Public Use
  Company Number: US-ASTRAZENECA-2020SF34334

PATIENT
  Age: 27091 Day
  Sex: Female

DRUGS (1)
  1. BEVESPI AEROSPHERE [Suspect]
     Active Substance: FORMOTEROL FUMARATE\GLYCOPYRROLATE
     Dosage: 9/4.8MCG 2 PUFFS TWICE DAILY
     Route: 055
     Dates: start: 2016

REACTIONS (4)
  - Product dose omission issue [Unknown]
  - Dyspnoea [Unknown]
  - Device malfunction [Unknown]
  - Device malfunction [Unknown]

NARRATIVE: CASE EVENT DATE: 20201010
